FAERS Safety Report 9835370 (Version 2)
Quarter: 2014Q1

REPORT INFORMATION
  Report Type: Spontaneous
  Country: US (occurrence: US)
  Receive Date: 20140122
  Receipt Date: 20140122
  Transmission Date: 20141002
  Serious: No
  Sender: FDA-Public Use
  Company Number: US-BRISTOL-MYERS SQUIBB COMPANY-19514934

PATIENT
  Age: 86 Year
  Sex: Female

DRUGS (6)
  1. ELIQUIS [Suspect]
     Indication: ATRIAL FIBRILLATION
     Route: 048
     Dates: start: 20130429, end: 20130926
  2. FOSAMAX [Concomitant]
  3. GABAPENTIN [Concomitant]
  4. LORCET [Concomitant]
  5. ALENDRONATE [Concomitant]
  6. ZOLPIDEM [Concomitant]

REACTIONS (1)
  - Arthralgia [Unknown]
